FAERS Safety Report 4475626-X (Version None)
Quarter: 2004Q4

REPORT INFORMATION
  Report Type: 
  Country: None (occurrence: None)
  Receive Date: 20041012
  Receipt Date: 20040924
  Transmission Date: 20050328
  Serious: Yes (Hospitalization)
  Sender: FDA-Public Use
  Company Number: ST-2004-008072

PATIENT
  Age: 72 Year
  Sex: Female
  Weight: 67 kg

DRUGS (9)
  1. OLMETEC [Suspect]
     Indication: ESSENTIAL HYPERTENSION
     Dosage: 20 MG QD PO
     Route: 048
     Dates: start: 20040901, end: 20040904
  2. DIOVAN [Suspect]
     Dosage: 80 MG QD PO
     Route: 048
     Dates: start: 20021116, end: 20040831
  3. NIFLAN [Suspect]
     Dosage: 7.5 MG TID PO
     Route: 048
     Dates: start: 20040723, end: 20040906
  4. ENCHININ [Suspect]
     Dosage: 1 MG TID PO
     Route: 048
     Dates: start: 20040723, end: 20040906
  5. IOTROL [Concomitant]
  6. RENIVACE [Concomitant]
  7. HALCION [Concomitant]
  8. METHYCOOL [Concomitant]
  9. NORVASC [Concomitant]

REACTIONS (4)
  - ANOREXIA [None]
  - DIZZINESS [None]
  - HEPATIC FUNCTION ABNORMAL [None]
  - MALAISE [None]
